FAERS Safety Report 23056425 (Version 2)
Quarter: 2023Q4

REPORT INFORMATION
  Report Type: Report from Study
  Country: GB (occurrence: GB)
  Receive Date: 20231011
  Receipt Date: 20231102
  Transmission Date: 20240109
  Serious: Yes (Hospitalization)
  Sender: FDA-Public Use
  Company Number: GB-Eisai Medical Research-EC-2023-146696

PATIENT
  Age: 59 Year
  Sex: Female
  Weight: 92.7 kg

DRUGS (20)
  1. LENVATINIB [Suspect]
     Active Substance: LENVATINIB
     Indication: Renal cell carcinoma
     Route: 048
     Dates: start: 20230621, end: 20230726
  2. LENVATINIB [Suspect]
     Active Substance: LENVATINIB
     Route: 048
     Dates: start: 20230802, end: 20230907
  3. PEMBROLIZUMAB [Suspect]
     Active Substance: PEMBROLIZUMAB
     Indication: Renal cell carcinoma
     Route: 041
     Dates: start: 20230621, end: 20230621
  4. PEMBROLIZUMAB [Suspect]
     Active Substance: PEMBROLIZUMAB
     Route: 042
     Dates: start: 20230802
  5. CETIRIZINE HYDROCHLORIDE [Concomitant]
     Active Substance: CETIRIZINE HYDROCHLORIDE
     Dates: start: 2013
  6. ORAMORPH SR SUSTAINED RELEASE [Concomitant]
     Active Substance: MORPHINE SULFATE
     Dates: start: 2017
  7. SPIRIVA RESPIMAT [Concomitant]
     Active Substance: TIOTROPIUM BROMIDE
     Dates: start: 2021
  8. METOCLOPRAMIDE [Concomitant]
     Active Substance: METOCLOPRAMIDE
     Dates: start: 20230622
  9. BENZYDAMINE HYDROCHLORIDE [Concomitant]
     Active Substance: BENZYDAMINE HYDROCHLORIDE
     Dosage: RINSE
     Dates: start: 20230703, end: 20230725
  10. CHLORHEXIDINE GLUCONATE [Concomitant]
     Active Substance: CHLORHEXIDINE GLUCONATE
     Dosage: RINSE
     Dates: start: 20230703, end: 20230725
  11. ATORVASTATIN [Concomitant]
     Active Substance: ATORVASTATIN
     Dates: start: 20230708
  12. LEVOTHYROXINE SODIUM [Concomitant]
     Active Substance: LEVOTHYROXINE SODIUM
     Dates: start: 20230709
  13. DALTEPARIN SODIUM [Concomitant]
     Active Substance: DALTEPARIN SODIUM
     Dates: start: 20230710, end: 20230730
  14. FLUCONAZOLE [Concomitant]
     Active Substance: FLUCONAZOLE
     Dates: start: 20230725, end: 20230801
  15. CAPHOSOL [CALCIUM CHLORIDE;SODIUM CHLORIDE;SODIUM PHOSPHATE DIBASIC;SO [Concomitant]
     Dates: start: 20230725
  16. POTASSIUM BICARBONATE\POTASSIUM CHLORIDE [Concomitant]
     Active Substance: POTASSIUM BICARBONATE\POTASSIUM CHLORIDE
     Dates: start: 20230726, end: 20230729
  17. LOPERAMIDE [Concomitant]
     Active Substance: LOPERAMIDE
     Dates: start: 2017
  18. ALBUTEROL [Concomitant]
     Active Substance: ALBUTEROL
     Dates: start: 2018
  19. MORPHINE SULFATE [Concomitant]
     Active Substance: MORPHINE SULFATE
     Dates: start: 2020
  20. CITALOPRAM [Concomitant]
     Active Substance: CITALOPRAM HYDROBROMIDE
     Dates: start: 2020

REACTIONS (1)
  - Cardiac ventricular thrombosis [Not Recovered/Not Resolved]

NARRATIVE: CASE EVENT DATE: 20230731
